FAERS Safety Report 13526289 (Version 1)
Quarter: 2017Q2

REPORT INFORMATION
  Report Type: Other
  Country: TR (occurrence: TR)
  Receive Date: 20170509
  Receipt Date: 20170509
  Transmission Date: 20170830
  Serious: Yes (Death)
  Sender: FDA-Public Use
  Company Number: TR-ORCHID HEALTHCARE-2020435

PATIENT
  Age: 76 Year
  Sex: Female
  Weight: 80 kg

DRUGS (1)
  1. AMLODIPINE BESYLATE. [Suspect]
     Active Substance: AMLODIPINE BESYLATE
     Route: 065

REACTIONS (11)
  - Loss of consciousness [Unknown]
  - Ischaemia [Unknown]
  - Lactic acidosis [Unknown]
  - Central venous pressure decreased [Unknown]
  - Sinus bradycardia [Unknown]
  - Metabolic acidosis [Unknown]
  - Completed suicide [Fatal]
  - Intentional overdose [Fatal]
  - Confusional state [Unknown]
  - Hypotension [Unknown]
  - Cardiac arrest [Fatal]
